FAERS Safety Report 23797207 (Version 2)
Quarter: 2025Q1

REPORT INFORMATION
  Report Type: Report from Study
  Country: US (occurrence: US)
  Receive Date: 20240430
  Receipt Date: 20250123
  Transmission Date: 20250409
  Serious: Yes (Other)
  Sender: Unknown Manufacturer
  Company Number: US-MIRUM PHARMACEUTICALS, INC.-US-MIR-24-00150

PATIENT
  Age: 0 Year
  Sex: Female
  Weight: 5.58 kg

DRUGS (1)
  1. LIVMARLI [Suspect]
     Active Substance: MARALIXIBAT CHLORIDE
     Indication: Congenital absence of bile ducts
     Dosage: 0.2 MILLILITER, QD
     Route: 048
     Dates: start: 20240131

REACTIONS (2)
  - Liver transplant [Unknown]
  - Off label use [Unknown]

NARRATIVE: CASE EVENT DATE: 20240131
